FAERS Safety Report 6871713-7 (Version None)
Quarter: 2010Q3

REPORT INFORMATION
  Report Type: 
  Country: None (occurrence: None)
  Receive Date: 20100723
  Receipt Date: 20100702
  Transmission Date: 20110219
  Serious: Yes (Hospitalization)
  Sender: FDA-Public Use
  Company Number: A0833966A

PATIENT
  Age: 63 Year
  Sex: Male

DRUGS (8)
  1. AVANDIA [Suspect]
     Dosage: 8MG PER DAY
     Route: 048
     Dates: start: 19980101, end: 20050101
  2. LIPITOR [Concomitant]
  3. ULTRAM [Concomitant]
  4. CARDIZEM [Concomitant]
  5. CLONAZEPAM [Concomitant]
  6. DETROL [Concomitant]
  7. UROCIT-K [Concomitant]
  8. HYDRODIURIL [Concomitant]

REACTIONS (2)
  - CORONARY ARTERY OCCLUSION [None]
  - MYOCARDIAL INFARCTION [None]
